FAERS Safety Report 23707284 (Version 2)
Quarter: 2024Q2

REPORT INFORMATION
  Report Type: Report from Study
  Country: US (occurrence: US)
  Receive Date: 20240404
  Receipt Date: 20240606
  Transmission Date: 20240715
  Serious: Yes (Other)
  Sender: FDA-Public Use
  Company Number: US-SPRINGWORKS THERAPEUTICS-SW-000563

PATIENT
  Age: 30 Year
  Sex: Female
  Weight: 119 kg

DRUGS (3)
  1. NIROGACESTAT [Suspect]
     Active Substance: NIROGACESTAT
     Indication: Desmoid tumour
     Dosage: 150 MILLIGRAM, QD
     Route: 048
     Dates: start: 20201227
  2. NIROGACESTAT [Suspect]
     Active Substance: NIROGACESTAT
     Dosage: 100 MILLIGRAM, BID
  3. ERRIN [Concomitant]
     Active Substance: NORETHINDRONE
     Indication: Contraception
     Dosage: 0.35 MILLIGRAM
     Route: 048
     Dates: start: 20210112, end: 202104

REACTIONS (1)
  - Ovarian failure [Recovered/Resolved]

NARRATIVE: CASE EVENT DATE: 20210315
